FAERS Safety Report 15525699 (Version 8)
Quarter: 2021Q1

REPORT INFORMATION
  Report Type: Report from Study
  Country: FR (occurrence: FR)
  Receive Date: 20181018
  Receipt Date: 20210308
  Transmission Date: 20210419
  Serious: Yes (Life-Threatening, Hospitalization)
  Sender: FDA-Public Use
  Company Number: FR-ROCHE-2129155

PATIENT
  Age: 79 Year
  Sex: Female
  Weight: 93 kg

DRUGS (104)
  1. CYCLOPHOSPHAMIDE. [Suspect]
     Active Substance: CYCLOPHOSPHAMIDE
     Indication: DIFFUSE LARGE B-CELL LYMPHOMA
     Dosage: DATE OF MOST RECENT DOSE 1475 MG OF CYCLOPHOSPHAMIDE PRIOR TO INTESTINAL PERFORATION: 30/MAY/2018 (1
     Route: 042
     Dates: start: 20180530
  2. POLATUZUMAB VEDOTIN. [Suspect]
     Active Substance: POLATUZUMAB VEDOTIN
     Indication: DIFFUSE LARGE B-CELL LYMPHOMA
     Route: 042
     Dates: start: 20180530
  3. PANTOPRAZOLE [Concomitant]
     Active Substance: PANTOPRAZOLE
     Route: 048
     Dates: start: 20180809, end: 20180914
  4. PREVISCAN (FRANCE) [Concomitant]
     Active Substance: FLUINDIONE
     Indication: ATRIAL FIBRILLATION
     Route: 048
     Dates: end: 20180603
  5. DEXERYL (FRANCE) [Concomitant]
     Active Substance: GLYCERIN\MINERAL OIL\PETROLATUM
     Indication: DRY SKIN
     Route: 058
     Dates: start: 20180515, end: 20180521
  6. MORPHINE [Concomitant]
     Active Substance: MORPHINE
     Indication: PAIN
     Route: 042
     Dates: start: 20180531, end: 20180531
  7. TIENAM [Concomitant]
     Active Substance: CILASTATIN SODIUM\IMIPENEM
     Indication: ERYSIPELAS
     Dosage: 500/500 MG
     Route: 042
     Dates: start: 20180603, end: 20180618
  8. KAYEXALATE [Concomitant]
     Active Substance: SODIUM POLYSTYRENE SULFONATE
     Indication: HYPERKALAEMIA
     Route: 048
     Dates: start: 20180529, end: 20180529
  9. NOVORAPID [Concomitant]
     Active Substance: INSULIN ASPART
     Indication: HYPERGLYCAEMIA
     Route: 058
     Dates: start: 20180530, end: 20180530
  10. FOLINATE DE CALCIUM [Concomitant]
     Active Substance: LEUCOVORIN CALCIUM
     Dosage: ANTI VITAMINE B6 DEPLETION
     Route: 048
     Dates: start: 20180517
  11. AMIKACINE [Concomitant]
     Active Substance: AMIKACIN
     Dosage: ANTI INFECTIVE?DROPS
     Route: 042
     Dates: start: 20180531, end: 20180531
  12. ZARZIO [Concomitant]
     Active Substance: FILGRASTIM
     Dosage: ANTI NEUTROPENIA
     Route: 058
     Dates: start: 20180731, end: 20180805
  13. PENTACARINAT [Concomitant]
     Active Substance: PENTAMIDINE ISETHIONATE
     Dates: start: 20180923
  14. PANTOPRAZOLE [Concomitant]
     Active Substance: PANTOPRAZOLE
     Route: 042
     Dates: start: 20180603, end: 20180719
  15. PANTOPRAZOLE [Concomitant]
     Active Substance: PANTOPRAZOLE
     Route: 048
     Dates: start: 20180522, end: 20180523
  16. TRAMADOL. [Concomitant]
     Active Substance: TRAMADOL
     Indication: PAIN
     Route: 042
     Dates: start: 20180531, end: 20180531
  17. TIENAM [Concomitant]
     Active Substance: CILASTATIN SODIUM\IMIPENEM
     Route: 042
     Dates: start: 20180914, end: 20180920
  18. VANCOMYCINE [Concomitant]
     Active Substance: VANCOMYCIN
     Dosage: ANTI INFECTIVE
     Route: 042
     Dates: start: 20180829, end: 20180829
  19. HEPARINE SODIQUE [Concomitant]
     Active Substance: HEPARIN SODIUM
     Dosage: ANTI THROMBOSIS
     Route: 042
     Dates: start: 20180603, end: 20180607
  20. MESNA. [Concomitant]
     Active Substance: MESNA
     Dosage: PREMEDICATINON, PROPHYLAXIS FOR HEMORRHAGIC CYSTITIS
     Dates: start: 20180530, end: 20180921
  21. POLARAMINE [Concomitant]
     Active Substance: DEXCHLORPHENIRAMINE MALEATE
     Dosage: ANTI ALLERGY
     Route: 042
     Dates: start: 20180618, end: 20180711
  22. DIOSMECTITE [Concomitant]
     Active Substance: MONTMORILLONITE
     Dosage: ANTI DIARRHEA
     Route: 048
     Dates: start: 20180626, end: 20180703
  23. AERIUS [Concomitant]
     Route: 048
     Dates: start: 20180522, end: 20180921
  24. IMODIUM [Concomitant]
     Active Substance: LOPERAMIDE HYDROCHLORIDE
     Route: 048
     Dates: start: 20180703
  25. DIFFU K [Concomitant]
     Active Substance: POTASSIUM CHLORIDE
     Indication: HYPOKALAEMIA
     Route: 048
     Dates: start: 20181025, end: 20181102
  26. PANTOPRAZOLE [Concomitant]
     Active Substance: PANTOPRAZOLE
     Route: 042
     Dates: start: 20180806, end: 20180806
  27. LASILIX [Concomitant]
     Active Substance: FUROSEMIDE
     Indication: OEDEMA
     Route: 042
     Dates: start: 20180531, end: 20180531
  28. TRAMADOL. [Concomitant]
     Active Substance: TRAMADOL
     Route: 048
     Dates: start: 20180717, end: 20180806
  29. INNOHEP [Concomitant]
     Active Substance: TINZAPARIN SODIUM
     Route: 058
     Dates: start: 20180915, end: 201811
  30. LORATADINE. [Concomitant]
     Active Substance: LORATADINE
     Route: 048
     Dates: start: 20180621
  31. ZELITREX [Concomitant]
     Active Substance: VALACYCLOVIR HYDROCHLORIDE
     Dosage: ANTI INFECTIVES
     Route: 048
     Dates: start: 20180515
  32. RACECADOTRIL [Concomitant]
     Active Substance: RACECADOTRIL
     Route: 048
     Dates: start: 20180626
  33. TAHOR [Concomitant]
     Active Substance: ATORVASTATIN CALCIUM
     Indication: DYSLIPIDAEMIA
     Route: 048
     Dates: start: 20180517, end: 20180711
  34. FOLINORAL [Concomitant]
     Active Substance: LEUCOVORIN CALCIUM
     Route: 048
     Dates: start: 20180517, end: 20180824
  35. PRIMPERAN [Concomitant]
     Active Substance: METOCLOPRAMIDE HYDROCHLORIDE
     Route: 048
     Dates: start: 20180720, end: 20180728
  36. SOLU?MEDROL [Concomitant]
     Active Substance: METHYLPREDNISOLONE SODIUM SUCCINATE
     Indication: LYMPHOMA
     Route: 042
     Dates: start: 20180518, end: 20180522
  37. ECAZIDE [Concomitant]
     Active Substance: CAPTOPRIL\HYDROCHLOROTHIAZIDE
     Indication: HYPERTENSION
     Route: 048
     Dates: end: 20180603
  38. ECAZIDE [Concomitant]
     Active Substance: CAPTOPRIL\HYDROCHLOROTHIAZIDE
     Route: 048
     Dates: start: 20180518, end: 20180520
  39. BACTRIM [Concomitant]
     Active Substance: SULFAMETHOXAZOLE\TRIMETHOPRIM
     Dosage: ANTI INFECTIVE?800 UNIT UNKNOWN
     Route: 048
     Dates: start: 20180515, end: 20180603
  40. VANCOMYCINE [Concomitant]
     Active Substance: VANCOMYCIN
     Dosage: ANTI INFECTIVE
     Route: 042
     Dates: start: 20180603, end: 20180615
  41. CANCIDAS [Concomitant]
     Active Substance: CASPOFUNGIN ACETATE
     Dosage: ANTI INFECTIVE
     Route: 042
     Dates: start: 20180824, end: 20180829
  42. INNOHEP [Concomitant]
     Active Substance: TINZAPARIN SODIUM
     Route: 058
     Dates: start: 20180516, end: 20180522
  43. ISOFUNDINE [Concomitant]
     Active Substance: CALCIUM CHLORIDE\MAGNESIUM CHLORIDE\MALIC ACID\POTASSIUM CHLORIDE\SODIUM ACETATE\SODIUM CHLORIDE
     Route: 042
     Dates: start: 20180603, end: 20180606
  44. AUGMENTIN [Concomitant]
     Active Substance: AMOXICILLIN\CLAVULANATE POTASSIUM
     Dosage: ANTI INFECTIVES
     Dates: end: 20180528
  45. ACUPAN [Concomitant]
     Active Substance: NEFOPAM HYDROCHLORIDE
     Indication: PAIN
     Route: 042
     Dates: start: 20180603, end: 20180621
  46. ZYLORIC [Concomitant]
     Active Substance: ALLOPURINOL
     Indication: HYPERURICAEMIA
     Route: 048
     Dates: end: 20180517
  47. ESIDREX [Concomitant]
     Active Substance: HYDROCHLOROTHIAZIDE
     Indication: HYPERTENSION
     Route: 048
     Dates: start: 20180518, end: 20180520
  48. DOXORUBICIN [Suspect]
     Active Substance: DOXORUBICIN
     Indication: DIFFUSE LARGE B-CELL LYMPHOMA
     Dosage: DATE OF MOST RECENT DOSE 99 MG OF DOXORUBICIN PRIOR TO INTESTINAL PERFORATION: 30/MAY/2018 99 MG AND
     Route: 042
     Dates: start: 20180530
  49. PREDNISONE. [Concomitant]
     Active Substance: PREDNISONE
     Dates: start: 20180516, end: 20180517
  50. PREDNISONE. [Concomitant]
     Active Substance: PREDNISONE
     Indication: LYMPHOMA
     Route: 048
     Dates: start: 20180516, end: 20180517
  51. LASILIX [Concomitant]
     Active Substance: FUROSEMIDE
     Indication: HYPERTENSION
     Route: 042
     Dates: start: 20180605, end: 20180609
  52. LASILIX [Concomitant]
     Active Substance: FUROSEMIDE
     Route: 042
     Dates: start: 20180529, end: 20180530
  53. LASILIX [Concomitant]
     Active Substance: FUROSEMIDE
     Route: 048
     Dates: start: 20180604, end: 20180605
  54. LASILIX [Concomitant]
     Active Substance: FUROSEMIDE
     Route: 048
     Dates: end: 20180522
  55. LASILIX [Concomitant]
     Active Substance: FUROSEMIDE
     Route: 048
     Dates: start: 20180829, end: 20180829
  56. INNOHEP [Concomitant]
     Active Substance: TINZAPARIN SODIUM
     Route: 058
     Dates: start: 20180607, end: 20180805
  57. BISOPROLOL [Concomitant]
     Active Substance: BISOPROLOL
     Indication: ATRIAL FIBRILLATION
     Route: 048
     Dates: start: 20180529, end: 20180531
  58. BISOPROLOL [Concomitant]
     Active Substance: BISOPROLOL
     Route: 048
     Dates: start: 20180604, end: 20180613
  59. LOPERAMIDE [Concomitant]
     Active Substance: LOPERAMIDE
     Dosage: ANTI DIARRHEA
     Route: 048
     Dates: start: 20180703
  60. ACUPAN [Concomitant]
     Active Substance: NEFOPAM HYDROCHLORIDE
     Route: 048
     Dates: start: 20180620, end: 20180914
  61. SPECIAFOLDINE [Concomitant]
     Active Substance: FOLIC ACID
     Dosage: ANTI HEMOLYTIC ANEMIA
     Route: 048
     Dates: end: 20180522
  62. BINOCRIT [Concomitant]
     Active Substance: ERYTHROPOIETIN
     Indication: ANAEMIA
     Route: 058
     Dates: start: 20180720, end: 20181012
  63. WELLVONE [Concomitant]
     Active Substance: ATOVAQUONE
     Route: 048
     Dates: start: 20180831, end: 20180920
  64. EXACYL [Concomitant]
     Active Substance: TRANEXAMIC ACID
     Indication: HAEMORRHAGE
     Route: 042
     Dates: start: 20180806, end: 20180806
  65. UROKINASE [Concomitant]
     Active Substance: UROKINASE
     Indication: THROMBOLYSIS
     Route: 042
     Dates: start: 20180920, end: 20180920
  66. PREDNISONE. [Suspect]
     Active Substance: PREDNISONE
     Indication: DIFFUSE LARGE B-CELL LYMPHOMA
     Dosage: DATE OF MOST RECENT DOSE 80 MG OF DOXORUBICIN PRIOR TO DIGESTIVE HEMORRHAGE: 22/MAY/2018 AND PRIOR T
     Route: 042
     Dates: start: 20180522
  67. PLACEBO [Suspect]
     Active Substance: UNSPECIFIED INGREDIENT
     Indication: DIFFUSE LARGE B-CELL LYMPHOMA
     Route: 042
     Dates: start: 20180530
  68. MORPHINE [Concomitant]
     Active Substance: MORPHINE
     Route: 042
     Dates: start: 20180606, end: 20180606
  69. CANCIDAS [Concomitant]
     Active Substance: CASPOFUNGIN ACETATE
     Dosage: INFECTION OF CANDIDA FEKIR
     Route: 042
     Dates: start: 20180604, end: 20180617
  70. INNOHEP [Concomitant]
     Active Substance: TINZAPARIN SODIUM
     Route: 058
     Dates: start: 20180529, end: 20180531
  71. RINGERS LACTATE [Concomitant]
     Active Substance: CALCIUM CHLORIDE\POTASSIUM CHLORIDE\SODIUM LACTATE
     Dosage: IONIC SOLUTION
     Route: 042
     Dates: start: 20180608, end: 20180608
  72. POTASSIUM CHLORIDE. [Concomitant]
     Active Substance: POTASSIUM CHLORIDE
     Indication: HYPOKALAEMIA
     Route: 042
     Dates: start: 20180608, end: 20180613
  73. BISOPROLOL [Concomitant]
     Active Substance: BISOPROLOL
     Route: 048
     Dates: end: 20180522
  74. LORATADINE. [Concomitant]
     Active Substance: LORATADINE
     Dosage: ANTI ALLERGY
     Route: 048
     Dates: start: 20180516, end: 20180522
  75. PARACETAMOL [Concomitant]
     Active Substance: ACETAMINOPHEN
     Indication: PREMEDICATION
     Dosage: PREMEDICATION
     Route: 048
     Dates: start: 20180522, end: 20180921
  76. ACIDE FOLIQUE [Concomitant]
     Active Substance: FOLIC ACID
     Route: 048
     Dates: start: 20180515
  77. ZYLORIC [Concomitant]
     Active Substance: ALLOPURINOL
     Route: 048
     Dates: start: 20180727, end: 20180806
  78. AERIUS [Concomitant]
     Dosage: ANTI ALLERGY
     Route: 048
     Dates: start: 20180516, end: 20180522
  79. FOLINORAL [Concomitant]
     Active Substance: LEUCOVORIN CALCIUM
     Route: 048
     Dates: start: 20180920
  80. PANTOPRAZOLE [Concomitant]
     Active Substance: PANTOPRAZOLE
     Route: 048
     Dates: start: 20180522, end: 20180531
  81. FUCIDINE [Concomitant]
     Dosage: ANTI INFECTIVE
     Route: 048
     Dates: end: 20180515
  82. TITANOREINE [Concomitant]
     Active Substance: CARRAGEENAN\TITANIUM\ZINC
     Route: 054
     Dates: start: 20180515, end: 20180522
  83. SPASFON (FRANCE) [Concomitant]
     Active Substance: PHLOROGLUCINOL\1,3,5-TRIMETHOXYBENZENE
     Indication: ABDOMINAL PAIN
     Route: 042
     Dates: start: 20180531, end: 20180531
  84. VANCOMYCINE [Concomitant]
     Active Substance: VANCOMYCIN
     Dosage: ANTI INFECTIVE
     Route: 042
     Dates: start: 20180914, end: 20180917
  85. BISOPROLOL [Concomitant]
     Active Substance: BISOPROLOL
     Route: 048
     Dates: start: 20180625
  86. ZOPHREN [Concomitant]
     Active Substance: ONDANSETRON
     Dosage: PREMEDICATION
     Route: 048
     Dates: start: 20180530, end: 20180921
  87. AMIKACINE [Concomitant]
     Active Substance: AMIKACIN
     Dosage: ANTI INFECTIVE
     Route: 042
     Dates: start: 20180728, end: 20180730
  88. FASTURTEC [Concomitant]
     Active Substance: RASBURICASE
     Dosage: ANTI LYSIS SYNDROM
     Route: 042
     Dates: start: 20180521, end: 20180521
  89. ALBUMINE [Concomitant]
     Active Substance: ALBUMIN HUMAN
     Dosage: INCREASE OF BLOOD VOLUME
     Route: 042
     Dates: start: 20180607, end: 20180611
  90. ZYLORIC [Concomitant]
     Active Substance: ALLOPURINOL
     Route: 048
     Dates: start: 20180518, end: 20180711
  91. ZARZIO [Concomitant]
     Active Substance: FILGRASTIM
     Dosage: ANTI NEUTROPENIA
     Route: 042
     Dates: start: 20180605, end: 20180612
  92. OROKEN [Concomitant]
     Active Substance: CEFIXIME
     Route: 048
     Dates: start: 20181025, end: 20181104
  93. RITUXIMAB. [Suspect]
     Active Substance: RITUXIMAB
     Indication: DIFFUSE LARGE B-CELL LYMPHOMA
     Dosage: DATE OF MOST RECENT DOSE OF RITUXIMAB PRIOR TO FIRST OCCURRENCE OF DIGESTIVE HEMORRHAGE: 22/MAY/2018
     Route: 042
     Dates: start: 20180522
  94. PANTOPRAZOLE [Concomitant]
     Active Substance: PANTOPRAZOLE
     Indication: GASTRIC ULCER
     Dates: start: 20180514
  95. CRESTOR [Concomitant]
     Active Substance: ROSUVASTATIN CALCIUM
     Indication: DYSLIPIDAEMIA
     Route: 048
     Dates: end: 20180516
  96. LASILIX [Concomitant]
     Active Substance: FUROSEMIDE
     Route: 048
     Dates: start: 20180830, end: 20180904
  97. TIENAM [Concomitant]
     Active Substance: CILASTATIN SODIUM\IMIPENEM
     Dosage: 500/500 MG
     Route: 042
     Dates: start: 20180625, end: 20180628
  98. INNOHEP [Concomitant]
     Active Substance: TINZAPARIN SODIUM
     Dates: start: 20180514
  99. BISOPROLOL [Concomitant]
     Active Substance: BISOPROLOL
     Route: 048
     Dates: start: 20180614, end: 20180622
  100. LORATADINE. [Concomitant]
     Active Substance: LORATADINE
     Route: 048
     Dates: start: 20180522
  101. ATORVASTATINE [Concomitant]
     Active Substance: ATORVASTATIN
     Indication: DYSLIPIDAEMIA
     Route: 048
     Dates: start: 20180517
  102. TAZOCILLINE [Concomitant]
     Active Substance: PIPERACILLIN SODIUM\TAZOBACTAM SODIUM
     Dosage: ANTI INFECTIVES
     Route: 042
     Dates: start: 20180528, end: 20180531
  103. DIPROSONE [Concomitant]
     Active Substance: BETAMETHASONE DIPROPIONATE
     Indication: DRY SKIN
     Route: 061
     Dates: start: 20180618, end: 20180711
  104. BACTRIM [Concomitant]
     Active Substance: SULFAMETHOXAZOLE\TRIMETHOPRIM

REACTIONS (6)
  - Intestinal perforation [Recovered/Resolved]
  - Hypovolaemia [Recovered/Resolved]
  - Gastrointestinal haemorrhage [Recovered/Resolved]
  - Gastrointestinal haemorrhage [Recovered/Resolved]
  - Pulmonary embolism [Recovered/Resolved]
  - Infection [Recovered/Resolved]

NARRATIVE: CASE EVENT DATE: 20180522
